FAERS Safety Report 6414693-0 (Version None)
Quarter: 2009Q4

REPORT INFORMATION
  Report Type: 
  Country: None (occurrence: None)
  Receive Date: 20091021
  Receipt Date: 20091012
  Transmission Date: 20100525
  Serious: Yes (Other)
  Sender: FDA-Public Use
  Company Number: 09US004324

PATIENT
  Age: 29 Year
  Sex: Female
  Weight: 59 kg

DRUGS (3)
  1. IBUPROFEN [Suspect]
     Indication: TOOTHACHE
     Dosage: 1600 MG/DAY ORAL, 1200 MG/DAY
     Route: 048
     Dates: end: 20090920
  2. IBUPROFEN [Suspect]
     Indication: TOOTHACHE
     Dosage: 1600 MG/DAY ORAL, 1200 MG/DAY
     Route: 048
     Dates: start: 20090921, end: 20091005
  3. OXYCONTIN [Suspect]
     Indication: TOOTHACHE
     Dosage: ORAL
     Route: 048
     Dates: start: 20091005, end: 20091006

REACTIONS (9)
  - ABDOMINAL DISTENSION [None]
  - ASTHENIA [None]
  - CONVULSION [None]
  - DRUG INEFFECTIVE [None]
  - FEELING ABNORMAL [None]
  - HYPOKALAEMIA [None]
  - INCORRECT DOSE ADMINISTERED [None]
  - INCORRECT DRUG ADMINISTRATION DURATION [None]
  - METABOLIC DISORDER [None]
